FAERS Safety Report 18626321 (Version 5)
Quarter: 2021Q2

REPORT INFORMATION
  Report Type: Report from Study
  Country: None (occurrence: CA)
  Receive Date: 20201216
  Receipt Date: 20210622
  Transmission Date: 20210717
  Serious: No
  Sender: FDA-Public Use
  Company Number: CA-ABBVIE-20K-028-3689181-00

PATIENT
  Age: 69 Year
  Sex: Female

DRUGS (6)
  1. RINVOQ [Suspect]
     Active Substance: UPADACITINIB
     Route: 048
     Dates: start: 202101, end: 202101
  2. RINVOQ [Suspect]
     Active Substance: UPADACITINIB
     Route: 048
     Dates: start: 2021
  3. RINVOQ [Suspect]
     Active Substance: UPADACITINIB
     Indication: RHEUMATOID ARTHRITIS
     Route: 048
     Dates: end: 202012
  4. RINVOQ [Suspect]
     Active Substance: UPADACITINIB
     Route: 048
     Dates: start: 20210211, end: 20210215
  5. METHOTREXATE. [Concomitant]
     Active Substance: METHOTREXATE
     Indication: PRODUCT USED FOR UNKNOWN INDICATION
     Dates: end: 202101
  6. RINVOQ [Suspect]
     Active Substance: UPADACITINIB
     Route: 048

REACTIONS (12)
  - Drug hypersensitivity [Unknown]
  - Facial pain [Unknown]
  - Muscle tightness [Not Recovered/Not Resolved]
  - Drug resistance [Unknown]
  - Back pain [Unknown]
  - Lacrimation increased [Unknown]
  - Herpes zoster [Unknown]
  - Cystitis [Not Recovered/Not Resolved]
  - Urinary tract infection [Unknown]
  - Cystitis [Recovered/Resolved]
  - Bladder disorder [Unknown]
  - Purulence [Unknown]

NARRATIVE: CASE EVENT DATE: 202012
